FAERS Safety Report 9897228 (Version 1)
Quarter: 2014Q1

REPORT INFORMATION
  Report Type: Report from Study
  Country: GB (occurrence: GB)
  Receive Date: 20140214
  Receipt Date: 20140214
  Transmission Date: 20141002
  Serious: Yes (Hospitalization, Other)
  Sender: FDA-Public Use
  Company Number: GB-ROCHE-1344182

PATIENT
  Sex: Female

DRUGS (2)
  1. RITUXIMAB [Suspect]
     Indication: RHEUMATOID ARTHRITIS
     Route: 065
     Dates: start: 20110617
  2. METHOTREXATE [Concomitant]

REACTIONS (6)
  - Malaise [Unknown]
  - Hyperthyroidism [Unknown]
  - Lethargy [Unknown]
  - Hyponatraemia [Unknown]
  - Depression [Unknown]
  - Hypercalcaemia [Unknown]
